FAERS Safety Report 8549385-5 (Version None)
Quarter: 2012Q3

REPORT INFORMATION
  Report Type: 
  Country: None (occurrence: None)
  Receive Date: 20120730
  Receipt Date: 20120717
  Transmission Date: 20120928
  Serious: Yes (Life-Threatening, Hospitalization, Other)
  Sender: FDA-Public Use
  Company Number: DK-JNJFOC-20120712492

PATIENT
  Age: 21 Year
  Sex: Female

DRUGS (1)
  1. TRAMADOL HCL [Suspect]
     Indication: PRODUCT USED FOR UNKNOWN INDICATION
     Route: 048

REACTIONS (5)
  - INTENTIONAL OVERDOSE [None]
  - HYPOXIA [None]
  - HYPERAMYLASAEMIA [None]
  - LACTIC ACIDOSIS [None]
  - DYSPNOEA [None]
